FAERS Safety Report 5990025-7 (Version None)
Quarter: 2008Q4

REPORT INFORMATION
  Report Type: 
  Country: None (occurrence: None)
  Receive Date: 20081209
  Receipt Date: 20081209
  Transmission Date: 20090506
  Serious: Yes (Other)
  Sender: FDA-Public Use
  Company Number: None

PATIENT
  Age: 44 Year
  Sex: Female
  Weight: 83.4619 kg

DRUGS (1)
  1. CAPZACIN HP ARTHRITIS PAIN 0.1% CHATTEM INC [Suspect]
     Indication: ARTHRITIS
     Dosage: PEA SIZE ONCE TOP
     Route: 061
     Dates: start: 20081207, end: 20081207

REACTIONS (4)
  - APPLICATION SITE ERYTHEMA [None]
  - APPLICATION SITE VESICLES [None]
  - BURNING SENSATION [None]
  - INSOMNIA [None]
